FAERS Safety Report 8165934-3 (Version None)
Quarter: 2012Q1

REPORT INFORMATION
  Report Type: 
  Country: None (occurrence: None)
  Receive Date: 20120227
  Receipt Date: 20111122
  Transmission Date: 20120608
  Serious: Yes (Other)
  Sender: FDA-Public Use
  Company Number: US-MYLANLABS-2011S1024066

PATIENT
  Age: 5 Year
  Sex: Male

DRUGS (9)
  1. PERIACTIN [Concomitant]
  2. AMNESTEEM [Suspect]
     Indication: NEUROBLASTOMA
     Route: 048
     Dates: start: 20110428, end: 20110915
  3. BACTRIM [Concomitant]
  4. COLACE [Concomitant]
  5. ZOFRAN [Concomitant]
  6. POLYETHYLENE GLYCOL [Concomitant]
  7. AMNESTEEM [Suspect]
     Dates: start: 20110428, end: 20110915
  8. ZANTAC [Concomitant]
  9. OXYCODONE HCL [Concomitant]

REACTIONS (2)
  - DRUG INEFFECTIVE FOR UNAPPROVED INDICATION [None]
  - NEUROBLASTOMA [None]
